FAERS Safety Report 19423529 (Version 2)
Quarter: 2021Q3

REPORT INFORMATION
  Report Type: Spontaneous
  Country: US (occurrence: US)
  Receive Date: 20210616
  Receipt Date: 20210714
  Transmission Date: 20211014
  Serious: No
  Sender: FDA-Public Use
  Company Number: US-JNJFOC-20210630594

PATIENT
  Sex: Male

DRUGS (1)
  1. IMODIUM MULTI?SYMPTOM RELIEF [Suspect]
     Active Substance: DIMETHICONE\LOPERAMIDE HYDROCHLORIDE
     Indication: DIARRHOEA
     Dosage: A FEW TIMES A MONTH?IMODIUM MULTI SYMPTOM RELIEF CAPLET 12S
     Route: 065

REACTIONS (2)
  - Product package associated injury [Unknown]
  - Product packaging issue [Unknown]
